FAERS Safety Report 7729874-3 (Version None)
Quarter: 2011Q3

REPORT INFORMATION
  Report Type: 
  Country: None (occurrence: None)
  Receive Date: 20110906
  Receipt Date: 20110830
  Transmission Date: 20111222
  Serious: Yes (Hospitalization)
  Sender: FDA-Public Use
  Company Number: US-ROCHE-800084

PATIENT
  Sex: Male
  Weight: 84.4 kg

DRUGS (2)
  1. OXALIPLATIN [Suspect]
     Route: 042
     Dates: start: 20110428, end: 20110616
  2. CAPECITABINE [Suspect]
     Dosage: EVERY 14 DAYS, DOSE: 1500/2000 MG
     Route: 048
     Dates: start: 20110428, end: 20110630

REACTIONS (2)
  - PNEUMONIA [None]
  - MALNUTRITION [None]
